FAERS Safety Report 24069505 (Version 2)
Quarter: 2024Q3

REPORT INFORMATION
  Report Type: Report from Study
  Country: DK (occurrence: DK)
  Receive Date: 20240710
  Receipt Date: 20240710
  Transmission Date: 20241016
  Serious: No
  Sender: ROCHE
  Company Number: DK-ROCHE-3389894

PATIENT
  Age: 45 Year
  Sex: Female

DRUGS (2)
  1. ALECTINIB [Suspect]
     Active Substance: ALECTINIB
     Indication: Non-small cell lung cancer
     Dosage: ON 05/APR 2023 REDUCED TO 300MG?450 MG X2 FROM 11/10/2023 (PATIENT HAD DECIDED THIS). 600MGX2 FROM 2
     Route: 065
     Dates: start: 20210831
  2. CALCIUM [Concomitant]
     Active Substance: CALCIUM

REACTIONS (2)
  - Myalgia [Recovered/Resolved]
  - Oedema peripheral [Recovered/Resolved]

NARRATIVE: CASE EVENT DATE: 20230201
